FAERS Safety Report 4553350-2 (Version None)
Quarter: 2005Q1

REPORT INFORMATION
  Report Type: 
  Country: None (occurrence: None)
  Receive Date: 20050112
  Receipt Date: 20041027
  Transmission Date: 20050727
  Serious: Yes (Death, Hospitalization)
  Sender: FDA-Public Use
  Company Number: DE_040613852

PATIENT
  Age: 59 Year
  Sex: Female
  Weight: 67 kg

DRUGS (11)
  1. PEMETREXED [Suspect]
     Indication: COLON CANCER
     Dosage: 500 MG/M2
     Route: 042
     Dates: start: 20040618
  2. IRINOTECAN HCL [Suspect]
     Indication: COLON CANCER
     Dosage: 350 MG/M2
     Route: 042
     Dates: start: 20040618
  3. MCP          (METOCLOPRAMIDE HYDROCHLORIDE) [Concomitant]
  4. VITAMIN B-12 [Concomitant]
  5. LAFOL    (FOLIC ACID) [Concomitant]
  6. DEXAMETHASONE [Concomitant]
  7. METOPROLOL TARTRATE [Concomitant]
  8. ZOLOFT [Concomitant]
  9. MG 5 -  LONGORAL             (MAGNESIUM ASPARTATE) [Concomitant]
  10. CALCIUM GLUCONATE [Concomitant]
  11. ALLOPURINOL [Concomitant]

REACTIONS (11)
  - CANDIDIASIS [None]
  - DIARRHOEA [None]
  - GENERAL PHYSICAL CONDITION ABNORMAL [None]
  - IMPLANT SITE INFECTION [None]
  - LEFT VENTRICULAR FAILURE [None]
  - LUNG INFILTRATION [None]
  - PANCYTOPENIA [None]
  - PNEUMONIA [None]
  - POST PROCEDURAL HAEMORRHAGE [None]
  - PULMONARY CONGESTION [None]
  - STOMATITIS [None]
